FAERS Safety Report 8282619-3 (Version None)
Quarter: 2012Q2

REPORT INFORMATION
  Report Type: 
  Country: None (occurrence: None)
  Receive Date: 20120410
  Receipt Date: 20120330
  Transmission Date: 20120825
  Serious: Yes (Hospitalization, Other)
  Sender: FDA-Public Use
  Company Number: AUR-APL-2012-01541

PATIENT
  Age: 58 Year
  Sex: Female

DRUGS (2)
  1. SERTRALINE HYDROCHLORIDE [Suspect]
     Indication: BIPOLAR DISORDER
     Dosage: 50 MG, 1 D
  2. ZIPRASIDONE HCL [Suspect]
     Indication: BIPOLAR DISORDER
     Dosage: 89 MG (40 MG, 2 IN 1 D)

REACTIONS (6)
  - PARKINSONISM [None]
  - CONDITION AGGRAVATED [None]
  - DYSKINESIA [None]
  - RABBIT SYNDROME [None]
  - WITHDRAWAL SYNDROME [None]
  - DEPRESSION [None]
